FAERS Safety Report 8976735 (Version 1)
Quarter: 2012Q4

REPORT INFORMATION
  Report Type: Report from Study
  Country: CA (occurrence: CA)
  Receive Date: 20121220
  Receipt Date: 20121220
  Transmission Date: 20130627
  Serious: Yes (Death, Life-Threatening, Disabling)
  Sender: FDA-Public Use
  Company Number: CA-UCBSA-073388

PATIENT
  Age: 81 Year
  Sex: Male
  Weight: 74.8 kg

DRUGS (6)
  1. CIMZIA [Suspect]
     Indication: RHEUMATOID ARTHRITIS
     Dosage: DOSE: 200MG
     Route: 058
     Dates: start: 20120628, end: 20121129
  2. ARAVA [Concomitant]
     Indication: RHEUMATOID ARTHRITIS
     Route: 048
     Dates: start: 20091120
  3. PLAQUENIL [Concomitant]
     Indication: RHEUMATOID ARTHRITIS
     Route: 048
     Dates: start: 20110611
  4. EZETROL [Concomitant]
     Route: 048
  5. ADALAT XL [Concomitant]
  6. LISINOPRIL [Concomitant]
     Dosage: 10 - 12.5MG

REACTIONS (2)
  - Death [Fatal]
  - Cerebrovascular accident [Not Recovered/Not Resolved]
